FAERS Safety Report 8569748 (Version 2)
Quarter: 2014Q1

REPORT INFORMATION
  Report Type: Spontaneous
  Country: US (occurrence: None)
  Receive Date: 20120323
  Receipt Date: 20130305
  Transmission Date: 20141002
  Serious: Yes (Hospitalization, Other)
  Sender: FDA-Public Use
  Company Number: 163-21880-11111718

PATIENT
  Age: 79 Year
  Sex: Female

DRUGS (5)
  1. REVLIMID (LENALIDOMIDE) (25 MILLIGRAMS, CAPSULES) [Suspect]
     Indication: PLASMA CELL MYELOMA
     Dosage: 25 MG, DAILY FOR 21 DAYS, PO
     Route: 048
     Dates: start: 20111021
  2. OXYCODONE  (OXYCODONE) [Concomitant]
  3. CIPROFLOXACIN EXTENDED-RELEASE [Concomitant]
  4. PRILOSEC [Concomitant]
  5. DECADRON [Concomitant]

REACTIONS (3)
  - Platelet count decreased [None]
  - Pancytopenia [None]
  - Cellulitis [None]
